FAERS Safety Report 6399032-6 (Version None)
Quarter: 2009Q4

REPORT INFORMATION
  Report Type: 
  Country: None (occurrence: None)
  Receive Date: 20091008
  Receipt Date: 20091008
  Transmission Date: 20100525
  Serious: Yes (Life-Threatening, Hospitalization)
  Sender: FDA-Public Use
  Company Number: None

PATIENT
  Sex: Female

DRUGS (2)
  1. ENOXAPARIN SODIUM [Suspect]
     Indication: CEREBROVASCULAR ACCIDENT
     Dosage: 80MG Q12H SQ
     Route: 058
     Dates: start: 20081116, end: 20081206
  2. AGGRENOX [Suspect]
     Dosage: 1 CAPSULE Q12H PO
     Route: 048

REACTIONS (4)
  - ANORECTAL DISORDER [None]
  - HAEMATOMA [None]
  - HYPOTENSION [None]
  - MENTAL STATUS CHANGES [None]
